FAERS Safety Report 6287517-2 (Version None)
Quarter: 2009Q3

REPORT INFORMATION
  Report Type: 
  Country: None (occurrence: None)
  Receive Date: 20090727
  Receipt Date: 20090715
  Transmission Date: 20100115
  Serious: Yes (Other)
  Sender: FDA-Public Use
  Company Number: 2009AL001005

PATIENT
  Age: 80 Year
  Sex: Female

DRUGS (10)
  1. DIGOXIN [Suspect]
     Indication: ATRIAL FIBRILLATION
     Dosage: PO
     Route: 048
  2. ASPIRIN [Concomitant]
  3. WELLBUTRIN [Concomitant]
  4. SYNTHROID [Concomitant]
  5. JANUVIA [Concomitant]
  6. LEVAQUIN [Concomitant]
  7. PLAVIX [Concomitant]
  8. METOPROLOL TARTRATE [Concomitant]
  9. NORVASC [Concomitant]
  10. TYLENOL (CAPLET) [Concomitant]

REACTIONS (13)
  - ANXIETY [None]
  - ATRIAL FIBRILLATION [None]
  - BRADYCARDIA [None]
  - DYSPHAGIA [None]
  - ECONOMIC PROBLEM [None]
  - EMOTIONAL DISTRESS [None]
  - MENTAL STATUS CHANGES [None]
  - MULTIPLE INJURIES [None]
  - OROPHARYNGEAL PAIN [None]
  - SQUAMOUS CELL CARCINOMA [None]
  - THERAPEUTIC AGENT TOXICITY [None]
  - VELOPHARYNGEAL INCOMPETENCE [None]
  - WEIGHT INCREASED [None]
